FAERS Safety Report 8309545-5 (Version None)
Quarter: 2012Q2

REPORT INFORMATION
  Report Type: 
  Country: None (occurrence: None)
  Receive Date: 20120425
  Receipt Date: 20120421
  Transmission Date: 20120825
  Serious: No
  Sender: FDA-Public Use
  Company Number: US-PFIZER INC-2012098720

PATIENT
  Sex: Female

DRUGS (1)
  1. PRISTIQ [Suspect]
     Dosage: UNK

REACTIONS (6)
  - TREMOR [None]
  - DIARRHOEA [None]
  - DRY MOUTH [None]
  - MUSCULOSKELETAL STIFFNESS [None]
  - FATIGUE [None]
  - INSOMNIA [None]
